FAERS Safety Report 15981543 (Version 4)
Quarter: 2021Q2

REPORT INFORMATION
  Report Type: Report from Study
  Country: US (occurrence: US)
  Receive Date: 20190219
  Receipt Date: 20210421
  Transmission Date: 20210716
  Serious: Yes (Other)
  Sender: FDA-Public Use
  Company Number: US-JNJFOC-20190210658

PATIENT
  Age: 38 Year
  Sex: Female
  Weight: 88.53 kg

DRUGS (10)
  1. STELARA [Suspect]
     Active Substance: USTEKINUMAB
     Indication: CROHN^S DISEASE
     Route: 058
     Dates: start: 20170201, end: 20190131
  2. BETADINE [Concomitant]
     Active Substance: POVIDONE-IODINE
     Indication: WOUND TREATMENT
     Route: 061
     Dates: start: 20190111, end: 20190111
  3. RHOGAM [Concomitant]
     Active Substance: HUMAN RHO(D) IMMUNE GLOBULIN
     Route: 065
     Dates: start: 20181120, end: 20181120
  4. BENADRYL [Concomitant]
     Active Substance: DIPHENHYDRAMINE HYDROCHLORIDE
     Indication: SLEEP DISORDER THERAPY
     Route: 048
     Dates: start: 20190101, end: 20190128
  5. VITAMIN D [Concomitant]
     Active Substance: VITAMIN D NOS
     Route: 048
     Dates: start: 20180505, end: 20190131
  6. ZOFRAN [Concomitant]
     Active Substance: ONDANSETRON HYDROCHLORIDE
     Indication: NAUSEA
     Dosage: 2 TOTAL
     Route: 048
     Dates: start: 20180630, end: 20180730
  7. FLEXERIL [Concomitant]
     Active Substance: CYCLOBENZAPRINE HYDROCHLORIDE
     Indication: DIASTASIS RECTI ABDOMINIS
     Dosage: 3.5 WEEKS
     Route: 048
     Dates: start: 20181215, end: 20190131
  8. TYLENOL [Concomitant]
     Active Substance: ACETAMINOPHEN
     Indication: ABSCESS
     Route: 048
     Dates: start: 20181216, end: 20181216
  9. CAFFEINE. [Concomitant]
     Active Substance: CAFFEINE
     Route: 048
     Dates: start: 20180505, end: 20190131
  10. TYLENOL [Concomitant]
     Active Substance: ACETAMINOPHEN
     Indication: PYREXIA
     Route: 048
     Dates: start: 20181205, end: 20181207

REACTIONS (3)
  - Perineal abscess [Recovered/Resolved]
  - Exposure during pregnancy [Recovered/Resolved]
  - Influenza [Unknown]

NARRATIVE: CASE EVENT DATE: 20180519
